FAERS Safety Report 5240563-X (Version None)
Quarter: 2007Q1

REPORT INFORMATION
  Report Type: 
  Country: None (occurrence: None)
  Receive Date: 20061208
  Receipt Date: 20060419
  Transmission Date: 20070707
  Serious: Yes (Other)
  Sender: FDA-Public Use
  Company Number: 2006UW06939

PATIENT
  Age: 62 Year
  Sex: Male
  Weight: 90.718 kg

DRUGS (6)
  1. CRESTOR [Suspect]
     Indication: BLOOD CHOLESTEROL INCREASED
     Dosage: 10 MG PO
     Route: 048
     Dates: start: 20051201
  2. ASPIRIN [Concomitant]
  3. COZAAR [Concomitant]
  4. ACE INHIBITOR [Concomitant]
  5. CARVEDILOL [Concomitant]
  6. ALPRAZOLAM [Concomitant]

REACTIONS (2)
  - MEMORY IMPAIRMENT [None]
  - MYALGIA [None]
